FAERS Safety Report 22309150 (Version 3)
Quarter: 2024Q2

REPORT INFORMATION
  Report Type: Report from Study
  Country: US (occurrence: US)
  Receive Date: 20230511
  Receipt Date: 20240514
  Transmission Date: 20240716
  Serious: Yes (Other)
  Sender: FDA-Public Use
  Company Number: US-AMNEAL PHARMACEUTICALS-2023-AMRX-01570

PATIENT
  Sex: Female

DRUGS (2)
  1. CARBIDOPA\LEVODOPA [Suspect]
     Active Substance: CARBIDOPA\LEVODOPA
     Indication: Parkinson^s disease
     Dosage: TAKE 1 TABLET BY MOUTH ONCE DAILY TO START AND INCREASED TO 1 TABLET BY MOUTH THREE TIMES A DAY AS T
     Route: 048
  2. CARBIDOPA\LEVODOPA [Suspect]
     Active Substance: CARBIDOPA\LEVODOPA
     Dosage: 1 TABLETS, (23.75-95MG) 2X/DAY
     Route: 048

REACTIONS (5)
  - Upper limb fracture [Unknown]
  - Staphylococcal infection [Unknown]
  - Illness [Unknown]
  - Nausea [Unknown]
  - Product use issue [Unknown]
